APPROVED DRUG PRODUCT: DIATRIZOATE MEGLUMINE AND DIATRIZOATE SODIUM
Active Ingredient: DIATRIZOATE MEGLUMINE; DIATRIZOATE SODIUM
Strength: 66%;10%
Dosage Form/Route: SOLUTION;ORAL, RECTAL
Application: A215049 | Product #001 | TE Code: AA
Applicant: ANNORA PHARMA PRIVATE LTD
Approved: Nov 17, 2023 | RLD: No | RS: No | Type: RX